FAERS Safety Report 8112541-4 (Version None)
Quarter: 2012Q1

REPORT INFORMATION
  Report Type: 
  Country: None (occurrence: None)
  Receive Date: 20120203
  Receipt Date: 20120125
  Transmission Date: 20120608
  Serious: Yes (Other)
  Sender: FDA-Public Use
  Company Number: US-JNJFOC-20120111358

PATIENT
  Age: 60 Year
  Sex: Female

DRUGS (2)
  1. REMICADE [Suspect]
     Indication: CROHN'S DISEASE
     Dosage: 4TH INFUSION
     Route: 042
     Dates: start: 20120124
  2. REMICADE [Suspect]
     Route: 042

REACTIONS (9)
  - RASH [None]
  - DYSKINESIA [None]
  - JOINT SWELLING [None]
  - MUSCULAR WEAKNESS [None]
  - INFUSION RELATED REACTION [None]
  - ARTHRALGIA [None]
  - PAIN [None]
  - MUSCLE TIGHTNESS [None]
  - CHEST PAIN [None]
